FAERS Safety Report 4876973-X (Version None)
Quarter: 2005Q4

REPORT INFORMATION
  Report Type: 
  Country: None (occurrence: None)
  Receive Date: 20051206
  Receipt Date: 20050922
  Transmission Date: 20060501
  Serious: No
  Sender: FDA-Public Use
  Company Number: USA0509108915

PATIENT
  Age: 69 Year
  Sex: Female

DRUGS (3)
  1. CYMBALTA [Suspect]
     Indication: DEPRESSION
     Dosage: 30 MG DAY
     Dates: start: 20050915
  2. LOPRESSOR [Concomitant]
  3. CATAPRES /UNK/ (CLONIDINE) [Concomitant]

REACTIONS (2)
  - AGITATION [None]
  - CONSTIPATION [None]
